FAERS Safety Report 10688118 (Version 1)
Quarter: 2014Q4

REPORT INFORMATION
  Report Type: Spontaneous
  Country: US (occurrence: None)
  Receive Date: 20141231
  Receipt Date: 20141231
  Transmission Date: 20150529
  Serious: No
  Sender: FDA-Public Use
  Company Number: None

PATIENT
  Age: 62 Year
  Sex: Male
  Weight: 103.42 kg

DRUGS (1)
  1. SUBUTEX [Suspect]
     Active Substance: BUPRENORPHINE HYDROCHLORIDE
     Indication: ANALGESIC THERAPY
     Dosage: 2 PILLS, TAKEN UNDER THE TONGUE
     Dates: start: 20141114, end: 20141214

REACTIONS (5)
  - Fatigue [None]
  - Pain [None]
  - Product quality issue [None]
  - Drug withdrawal syndrome [None]
  - Drug tolerance [None]

NARRATIVE: CASE EVENT DATE: 20141230
